FAERS Safety Report 10869433 (Version 6)
Quarter: 2016Q1

REPORT INFORMATION
  Report Type: Report from Study
  Country: CA (occurrence: CA)
  Receive Date: 20150226
  Receipt Date: 20160301
  Transmission Date: 20160525
  Serious: Yes (Other)
  Sender: FDA-Public Use
  Company Number: CA-ROCHE-1447474

PATIENT
  Age: 31 Year
  Sex: Female
  Weight: 69 kg

DRUGS (9)
  1. ACTEMRA [Suspect]
     Active Substance: TOCILIZUMAB
     Dosage: DOSE INCREASED, ON HOLD
     Route: 042
     Dates: start: 20140814
  2. ENBREL [Concomitant]
     Active Substance: ETANERCEPT
     Indication: PRODUCT USED FOR UNKNOWN INDICATION
     Dosage: LAST TAKEN MORE THAN 1 MONTH BEFORE
     Route: 065
  3. ACTEMRA [Suspect]
     Active Substance: TOCILIZUMAB
     Route: 042
     Dates: start: 20110606
  4. ACTEMRA [Suspect]
     Active Substance: TOCILIZUMAB
     Route: 042
     Dates: start: 20120710
  5. FISH OIL [Concomitant]
     Active Substance: FISH OIL
     Indication: PRODUCT USED FOR UNKNOWN INDICATION
     Dosage: IT WAS STOPPED BEFORE 8 MONTHS AT THE TIME OF THIS REPORT
     Route: 065
  6. PREDNISONE. [Concomitant]
     Active Substance: PREDNISONE
     Indication: PRODUCT USED FOR UNKNOWN INDICATION
     Dosage: IT WAS STOPPED BEFORE 8 MONTHS AT THE TIME OF THIS REPORT
     Route: 065
  7. ACTEMRA [Suspect]
     Active Substance: TOCILIZUMAB
     Indication: RHEUMATOID ARTHRITIS
     Route: 042
     Dates: start: 20100820
  8. METHOTREXATE [Concomitant]
     Active Substance: METHOTREXATE
     Indication: PRODUCT USED FOR UNKNOWN INDICATION
     Dosage: IT WAS STOPPED BEFORE 8 MONTHS AT THE TIME OF THIS REPORT
     Route: 065
  9. HUMIRA [Concomitant]
     Active Substance: ADALIMUMAB
     Indication: PRODUCT USED FOR UNKNOWN INDICATION
     Dosage: LAST TAKEN MORE THAN 1 MONTH BEFORE
     Route: 065

REACTIONS (10)
  - Cholelithiasis [Unknown]
  - Weight decreased [Unknown]
  - Abdominal pain [Unknown]
  - Frequent bowel movements [Recovered/Resolved]
  - Ovarian cyst [Not Recovered/Not Resolved]
  - Haemorrhagic ovarian cyst [Unknown]
  - Blood pressure diastolic increased [Unknown]
  - Abdominal discomfort [Recovered/Resolved]
  - Weight increased [Not Recovered/Not Resolved]
  - Influenza [Recovered/Resolved]

NARRATIVE: CASE EVENT DATE: 20101015
